FAERS Safety Report 20032298 (Version 1)
Quarter: 2021Q4

REPORT INFORMATION
  Report Type: Spontaneous
  Country: US (occurrence: None)
  Receive Date: 20211103
  Receipt Date: 20211103
  Transmission Date: 20220303
  Serious: No
  Sender: FDA-Public Use
  Company Number: 2021A792524

PATIENT
  Sex: Female

DRUGS (1)
  1. FASLODEX [Suspect]
     Active Substance: FULVESTRANT
     Indication: Breast cancer
     Dosage: FOR A MONTH OR 2, SHE REPORTS SHE GOT AWAY WITH JUST HALF DOSES
     Route: 030
     Dates: start: 202011

REACTIONS (11)
  - Amnesia [Not Recovered/Not Resolved]
  - Gastrointestinal disorder [Unknown]
  - Musculoskeletal discomfort [Unknown]
  - Pelvic pain [Unknown]
  - Groin pain [Unknown]
  - Arthralgia [Unknown]
  - Injection site pain [Unknown]
  - Loss of personal independence in daily activities [Unknown]
  - Product dose omission issue [Unknown]
  - Inappropriate schedule of product administration [Unknown]
  - Intentional underdose [Unknown]
